FAERS Safety Report 4429659-X (Version None)
Quarter: 2004Q3

REPORT INFORMATION
  Report Type: 
  Country: None (occurrence: None)
  Receive Date: 20040819
  Receipt Date: 20020516
  Transmission Date: 20050211
  Serious: Yes (Hospitalization, Other)
  Sender: FDA-Public Use
  Company Number: US-MERCK-0205USA02103

PATIENT
  Age: 72 Year
  Sex: Male
  Weight: 74 kg

DRUGS (8)
  1. [THERAPY UNSPECIFIED] [Concomitant]
     Route: 048
  2. ALFENTANIL HYDROCHLORIDE [Concomitant]
     Route: 065
  3. ASPIRIN [Concomitant]
     Route: 065
  4. LOTENSIN [Concomitant]
     Route: 048
  5. PLAVIX [Concomitant]
     Route: 048
  6. METOPROLOL [Concomitant]
     Route: 048
  7. VIOXX [Suspect]
     Indication: ARTHRITIS
     Route: 048
  8. ZOCOR [Concomitant]
     Route: 048

REACTIONS (15)
  - ACQUIRED CLAW TOE [None]
  - ACUTE MYOCARDIAL INFARCTION [None]
  - ANGINA UNSTABLE [None]
  - ARTHROPATHY [None]
  - BACK PAIN [None]
  - BLOOD PRESSURE INCREASED [None]
  - BURSITIS [None]
  - CAROTID ARTERY STENOSIS [None]
  - CEREBROVASCULAR ACCIDENT [None]
  - DIABETES MELLITUS NON-INSULIN-DEPENDENT [None]
  - DIARRHOEA [None]
  - HEADACHE [None]
  - MONARTHRITIS [None]
  - MYOCARDIAL INFARCTION [None]
  - TENDONITIS [None]
